FAERS Safety Report 19316856 (Version 1)
Quarter: 2021Q2

REPORT INFORMATION
  Report Type: Spontaneous
  Country: JP (occurrence: JP)
  Receive Date: 20210527
  Receipt Date: 20210527
  Transmission Date: 20210717
  Serious: Yes (Life-Threatening, Hospitalization)
  Sender: FDA-Public Use
  Company Number: JP-TEVA-2021-JP-1914821

PATIENT
  Age: 54 Year
  Sex: Female
  Weight: 77.5 kg

DRUGS (11)
  1. AMLODIPINE [Suspect]
     Active Substance: AMLODIPINE BESYLATE
     Indication: HYPERTENSION
     Dosage: PRESCRIBED DOSE WAS 5MG DAILY
     Route: 048
  2. INSULIN [Suspect]
     Active Substance: INSULIN NOS
     Indication: TOXICITY TO VARIOUS AGENTS
     Dosage: 1680 IU (INTERNATIONAL UNIT) DAILY;
     Route: 042
  3. ETIZOLAM [Suspect]
     Active Substance: ETIZOLAM
     Indication: INTENTIONAL PRODUCT MISUSE
     Route: 048
  4. NOREPINEPHRINE. [Suspect]
     Active Substance: NOREPINEPHRINE
     Indication: HYPOTENSION
     Dosage: UNKNOWN INITIAL DOSE
     Route: 065
  5. EPINEPHRINE. [Suspect]
     Active Substance: EPINEPHRINE
     Dosage: INCREASED TO 0.19 MICROG KG?1 MIN?1.
     Route: 065
  6. GLUCAGON. [Suspect]
     Active Substance: GLUCAGON
     Indication: TOXICITY TO VARIOUS AGENTS
     Route: 065
  7. OLMESARTAN [Suspect]
     Active Substance: OLMESARTAN
     Indication: HYPERTENSION
     Dosage: PRESCRIBED DOSE WAS 20MG DAILY
     Route: 048
  8. NOREPINEPHRINE. [Suspect]
     Active Substance: NOREPINEPHRINE
     Dosage: NOREPINEPHRINE INCREASED TO 0.45 MICROG KG?1 MIN?1.
     Route: 065
  9. BROTIZOLAM [Suspect]
     Active Substance: BROTIZOLAM
     Indication: INTENTIONAL PRODUCT MISUSE
     Route: 048
  10. CALCIUM GLUCONATE. [Suspect]
     Active Substance: CALCIUM GLUCONATE
     Indication: TOXICITY TO VARIOUS AGENTS
     Route: 042
  11. EPINEPHRINE. [Suspect]
     Active Substance: EPINEPHRINE
     Indication: HYPOTENSION
     Dosage: UNKNOWN INITIAL DOSE
     Route: 065

REACTIONS (10)
  - Mental disorder [Recovered/Resolved]
  - Distributive shock [Recovered/Resolved]
  - Intentional product misuse [Unknown]
  - Vasoplegia syndrome [Recovered/Resolved]
  - Suicide attempt [Unknown]
  - Drug ineffective [Unknown]
  - Toxicity to various agents [Recovered/Resolved]
  - Hypotension [Recovered/Resolved]
  - Intentional overdose [Unknown]
  - Metabolic acidosis [Recovered/Resolved]
